FAERS Safety Report 4331605-4 (Version None)
Quarter: 2004Q1

REPORT INFORMATION
  Report Type: 
  Country: None (occurrence: None)
  Receive Date: 20040331
  Receipt Date: 20040315
  Transmission Date: 20041129
  Serious: Yes (Other)
  Sender: FDA-Public Use
  Company Number: US_0403101673

PATIENT
  Age: 56 Year
  Sex: Male

DRUGS (3)
  1. GEMCITABINE HYDROCHLORIDE-IV (GEMCITABINE) [Suspect]
     Indication: METASTATIC CARCINOMA OF THE BLADDER
     Dosage: 1000 MG/M2 OTHER
     Route: 050
  2. CISPLATIN [Concomitant]
  3. RADIATION THERAPY [Concomitant]

REACTIONS (18)
  - ALANINE AMINOTRANSFERASE INCREASED [None]
  - ASPARTATE AMINOTRANSFERASE INCREASED [None]
  - ASTHENIA [None]
  - BLOOD CREATINE PHOSPHOKINASE INCREASED [None]
  - BLOOD CREATININE INCREASED [None]
  - BLOOD GLUCOSE INCREASED [None]
  - BLOOD LACTATE DEHYDROGENASE INCREASED [None]
  - HAEMOGLOBIN DECREASED [None]
  - HYPOAESTHESIA [None]
  - HYPOREFLEXIA [None]
  - MUSCLE NECROSIS [None]
  - MUSCULOSKELETAL STIFFNESS [None]
  - MYALGIA [None]
  - OEDEMA PERIPHERAL [None]
  - PARAESTHESIA [None]
  - RED BLOOD CELL SEDIMENTATION RATE INCREASED [None]
  - THROMBOSIS [None]
  - VASCULITIS NECROTISING [None]
